FAERS Safety Report 5847172-X (Version None)
Quarter: 2008Q3

REPORT INFORMATION
  Report Type: 
  Country: None (occurrence: None)
  Receive Date: 20080815
  Receipt Date: 20080808
  Transmission Date: 20090109
  Serious: Yes (Other)
  Sender: FDA-Public Use
  Company Number: PHHY2008JP16419

PATIENT
  Age: 37 Year
  Sex: Male

DRUGS (6)
  1. NEORAL [Suspect]
     Indication: HEPATITIS
     Route: 048
  2. SOLU-MEDROL [Concomitant]
     Dosage: 1000 MG
     Route: 042
  3. STEROIDS NOS [Concomitant]
  4. INTERFERON BETA [Concomitant]
     Route: 042
  5. PLASMAPHERESIS [Concomitant]
  6. HEMOFILTRATION [Concomitant]

REACTIONS (4)
  - BRONCHOPULMONARY ASPERGILLOSIS [None]
  - FUNGAL TEST POSITIVE [None]
  - PULMONARY CAVITATION [None]
  - PYREXIA [None]
